FAERS Safety Report 5586132-3 (Version None)
Quarter: 2008Q1

REPORT INFORMATION
  Report Type: 
  Country: None (occurrence: None)
  Receive Date: 20080104
  Receipt Date: 20071012
  Transmission Date: 20080703
  Serious: Yes (Hospitalization)
  Sender: FDA-Public Use
  Company Number: 2007S1010050

PATIENT
  Age: 35 Year
  Sex: Female

DRUGS (3)
  1. CITALOPRAM HYDROBROMIDE [Suspect]
  2. MOCLOBEMIDE (MOCLOBEMIDE) [Suspect]
  3. SERTRALINE [Suspect]

REACTIONS (9)
  - BLOOD PRESSURE INCREASED [None]
  - COMA [None]
  - GASTROINTESTINAL SOUNDS ABNORMAL [None]
  - MULTIPLE DRUG OVERDOSE INTENTIONAL [None]
  - MYDRIASIS [None]
  - NYSTAGMUS [None]
  - OVERDOSE [None]
  - SEROTONIN SYNDROME [None]
  - SUICIDE ATTEMPT [None]
